FAERS Safety Report 17965430 (Version 2)
Quarter: 2021Q1

REPORT INFORMATION
  Report Type: Report from Study
  Country: DE (occurrence: DE)
  Receive Date: 20200630
  Receipt Date: 20210310
  Transmission Date: 20210419
  Serious: Yes (Death, Life-Threatening)
  Sender: FDA-Public Use
  Company Number: NVSC2020DE183977

PATIENT
  Age: 55 Year
  Sex: Female
  Weight: 75 kg

DRUGS (5)
  1. KISQALI [Suspect]
     Active Substance: RIBOCICLIB
     Indication: BREAST CANCER METASTATIC
     Dosage: 600 MG
     Route: 048
     Dates: start: 20190227, end: 20190714
  2. LETROZOLE. [Suspect]
     Active Substance: LETROZOLE
     Dosage: 2.5 MG, QD
     Route: 048
     Dates: start: 20190715
  3. LETROZOLE. [Suspect]
     Active Substance: LETROZOLE
     Indication: BREAST CANCER METASTATIC
     Dosage: 2.5 MG, QD
     Route: 048
     Dates: start: 20190227
  4. KISQALI [Suspect]
     Active Substance: RIBOCICLIB
     Dosage: 400 MG
     Route: 048
     Dates: start: 20190715, end: 20200602
  5. VINORELBINE [Suspect]
     Active Substance: VINORELBINE TARTRATE
     Indication: PRODUCT USED FOR UNKNOWN INDICATION
     Dosage: UNK
     Route: 065

REACTIONS (2)
  - Aspiration [Fatal]
  - Ileus [Fatal]

NARRATIVE: CASE EVENT DATE: 20200620
